FAERS Safety Report 8361396-1 (Version None)
Quarter: 2012Q2

REPORT INFORMATION
  Report Type: 
  Country: None (occurrence: None)
  Receive Date: 20120515
  Receipt Date: 20110812
  Transmission Date: 20120825
  Serious: No
  Sender: FDA-Public Use
  Company Number: US-ALEXION-A201101232

PATIENT

DRUGS (1)
  1. SOLIRIS [Suspect]
     Indication: PAROXYSMAL NOCTURNAL HAEMOGLOBINURIA
     Dosage: 900 MG, UNK
     Route: 042

REACTIONS (4)
  - HAEMATOCRIT ABNORMAL [None]
  - RETICULOCYTE COUNT ABNORMAL [None]
  - HAPTOGLOBIN DECREASED [None]
  - FATIGUE [None]
